FAERS Safety Report 10425905 (Version 2)
Quarter: 2014Q4

REPORT INFORMATION
  Report Type: Report from Study
  Country: DE (occurrence: DE)
  Receive Date: 20140903
  Receipt Date: 20141110
  Transmission Date: 20150528
  Serious: Yes (Hospitalization, Other)
  Sender: FDA-Public Use
  Company Number: DE-BEH-2014044689

PATIENT
  Age: 60 Year
  Sex: Male
  Weight: 83 kg

DRUGS (11)
  1. L-THYROXINE [Concomitant]
     Active Substance: LEVOTHYROXINE
  2. VINCRISTINE [Concomitant]
     Active Substance: VINCRISTINE
     Indication: CHRONIC LYMPHOCYTIC LEUKAEMIA
     Route: 042
     Dates: start: 20140714
  3. PRIVIGEN [Suspect]
     Active Substance: HUMAN IMMUNOGLOBULIN G
     Indication: SECONDARY IMMUNODEFICIENCY
     Dosage: INFUSION RATE MIN 1.25, MAX.9 ML/MIN
     Route: 042
     Dates: start: 20140414, end: 20140414
  4. PRIVIGEN [Suspect]
     Active Substance: HUMAN IMMUNOGLOBULIN G
     Dosage: INFUSION RATE MIN 1.25, MAX.9 ML/MIN
     Route: 042
     Dates: start: 20140610, end: 20140610
  5. PRIVIGEN [Suspect]
     Active Substance: HUMAN IMMUNOGLOBULIN G
     Dosage: INFUSION RATE MIN 1.25, MAX.9 ML/MIN
     Route: 042
     Dates: start: 20140514, end: 20140514
  6. CYCLOPHOSPHAMIDE. [Concomitant]
     Active Substance: CYCLOPHOSPHAMIDE
     Indication: CHRONIC LYMPHOCYTIC LEUKAEMIA
     Route: 042
     Dates: start: 20140714
  7. PREDNISOLONE. [Concomitant]
     Active Substance: PREDNISOLONE
     Indication: CHRONIC LYMPHOCYTIC LEUKAEMIA
  8. PRIVIGEN [Suspect]
     Active Substance: HUMAN IMMUNOGLOBULIN G
     Indication: CHRONIC LYMPHOCYTIC LEUKAEMIA
     Dates: start: 20130513, end: 20140317
  9. PRIVIGEN [Suspect]
     Active Substance: HUMAN IMMUNOGLOBULIN G
     Indication: INFECTION
     Dosage: INFUSION RATE MIN 1.25, MAX.9 ML/MIN
     Route: 042
     Dates: start: 20140708, end: 20140708
  10. DOXORUBICIN [Concomitant]
     Active Substance: DOXORUBICIN
     Indication: CHRONIC LYMPHOCYTIC LEUKAEMIA
     Route: 042
     Dates: start: 20140714
  11. BLOPRESS [Concomitant]
     Active Substance: CANDESARTAN CILEXETIL

REACTIONS (4)
  - Staphylococcal sepsis [Recovered/Resolved]
  - Arthritis bacterial [Recovered/Resolved]
  - Pneumonia fungal [Recovered/Resolved]
  - Bronchopulmonary aspergillosis [Recovered/Resolved]

NARRATIVE: CASE EVENT DATE: 20140731
